FAERS Safety Report 8362867-4 (Version None)
Quarter: 2012Q2

REPORT INFORMATION
  Report Type: 
  Country: None (occurrence: None)
  Receive Date: 20120516
  Receipt Date: 20120416
  Transmission Date: 20120825
  Serious: No
  Sender: FDA-Public Use
  Company Number: US-MYLANLABS-2012S1005057

PATIENT
  Age: 58 Year
  Sex: Female

DRUGS (8)
  1. GABAPENTIN [Suspect]
     Indication: BACK PAIN
     Dosage: 1 CAPSULE AT NIGHT TO INCREASE BY 1 CAPSULE EVERY FIVE DAYS UP TO 4 CAPSULES IF NO SIDE EFFECTS.
     Route: 048
     Dates: start: 20120304
  2. GABAPENTIN [Suspect]
     Indication: PAIN IN EXTREMITY
     Dosage: 1 CAPSULE AT NIGHT TO INCREASE BY 1 CAPSULE EVERY FIVE DAYS UP TO 4 CAPSULES IF NO SIDE EFFECTS.
     Route: 048
     Dates: start: 20120304
  3. IOPAMIDOL [Concomitant]
     Dosage: EPIDURAL INJECTION TO LOWER BACK
  4. CELEXA [Concomitant]
  5. DEPO-MEDROL [Concomitant]
     Dosage: EPIDURAL INJECTION TO LOWER BACK
  6. GABAPENTIN [Suspect]
     Indication: ARTHRALGIA
     Dosage: 1 CAPSULE AT NIGHT TO INCREASE BY 1 CAPSULE EVERY FIVE DAYS UP TO 4 CAPSULES IF NO SIDE EFFECTS.
     Route: 048
     Dates: start: 20120304
  7. BUSPAR [Concomitant]
  8. LIDOCAINE [Concomitant]
     Dosage: EPIDURAL INJECTION TO LOWER BACK

REACTIONS (1)
  - CHROMATURIA [None]
